FAERS Safety Report 9390829 (Version 1)
Quarter: 2013Q3

REPORT INFORMATION
  Report Type: Spontaneous
  Country: US (occurrence: None)
  Receive Date: 20130705
  Receipt Date: 20130705
  Transmission Date: 20140515
  Serious: Yes (Death, Other)
  Sender: FDA-Public Use
  Company Number: 2013US0274

PATIENT
  Age: 59 Year
  Sex: Male

DRUGS (1)
  1. ANAKINRA [Suspect]
     Indication: STILL^S DISEASE ADULT ONSET
     Route: 058

REACTIONS (12)
  - Haemorrhage urinary tract [None]
  - Hydronephrosis [None]
  - Abdominal lymphadenopathy [None]
  - Retroperitoneal lymphadenopathy [None]
  - Atrial fibrillation [None]
  - Hepatosplenomegaly [None]
  - Anaemia [None]
  - Pyrexia [None]
  - Thrombocytopenia [None]
  - Serum ferritin increased [None]
  - Hypotension [None]
  - Anaplastic large-cell lymphoma [None]
